FAERS Safety Report 15741021 (Version 3)
Quarter: 2019Q4

REPORT INFORMATION
  Report Type: Spontaneous
  Country: CA (occurrence: CA)
  Receive Date: 20181219
  Receipt Date: 20191009
  Transmission Date: 20200122
  Serious: Yes (Other)
  Sender: FDA-Public Use
  Company Number: CA-SA-2018SA339599

PATIENT
  Age: 35 Year
  Sex: Female

DRUGS (14)
  1. MACROGOL 3350 [Suspect]
     Active Substance: POLYETHYLENE GLYCOL 3350
     Indication: PRODUCT USED FOR UNKNOWN INDICATION
     Dosage: UNK UNK, UNK
     Route: 065
  2. VITAMIN C [Concomitant]
     Active Substance: ASCORBIC ACID
     Indication: PRODUCT USED FOR UNKNOWN INDICATION
     Dosage: 500 MG, QD
     Route: 065
  3. AMITRIPTYLINE HYDROCHLORIDE. [Suspect]
     Active Substance: AMITRIPTYLINE HYDROCHLORIDE
     Indication: PRODUCT USED FOR UNKNOWN INDICATION
     Dosage: UNK, UNK
     Route: 065
  4. INVEGA [Suspect]
     Active Substance: PALIPERIDONE
     Indication: PSYCHOTIC DISORDER
     Dosage: 5 MG, UNK
     Route: 048
     Dates: start: 2015
  5. CIPRALEX [Concomitant]
     Active Substance: ESCITALOPRAM OXALATE
     Indication: DEPRESSION
     Dosage: 5 MG, BID
     Route: 048
  6. SULFAMETHOXAZOLE;TRIMETHOPRIM [Concomitant]
     Active Substance: SULFAMETHOXAZOLE\TRIMETHOPRIM
     Indication: PROPHYLAXIS URINARY TRACT INFECTION
     Dosage: UNK UNK, QD
     Route: 065
  7. ERGOCALCIFEROL. [Concomitant]
     Active Substance: ERGOCALCIFEROL
     Indication: PRODUCT USED FOR UNKNOWN INDICATION
     Dosage: 1000 MG, QID
     Route: 048
  8. CALCIUM [Concomitant]
     Active Substance: CALCIUM
     Indication: PRODUCT USED FOR UNKNOWN INDICATION
     Dosage: 500 MG, QD
     Route: 048
  9. RANITIDINE. [Suspect]
     Active Substance: RANITIDINE
     Indication: GASTROOESOPHAGEAL REFLUX DISEASE
     Dosage: 150 MG, UNK
     Route: 048
  10. INVEGA [Suspect]
     Active Substance: PALIPERIDONE
     Dosage: 6 MG, UNK
     Route: 048
  11. INVEGA [Suspect]
     Active Substance: PALIPERIDONE
     Dosage: 3 MG, BID
     Route: 048
  12. METAMUCIL [Suspect]
     Active Substance: PLANTAGO SEED
     Indication: PRODUCT USED FOR UNKNOWN INDICATION
     Dosage: UNK, UNK
     Route: 065
  13. DIAZEPAM. [Concomitant]
     Active Substance: DIAZEPAM
     Indication: PRODUCT USED FOR UNKNOWN INDICATION
     Dosage: 2 MG, BID
     Route: 065
  14. MAGNESIUM OXIDE. [Concomitant]
     Active Substance: MAGNESIUM OXIDE
     Indication: PRODUCT USED FOR UNKNOWN INDICATION
     Dosage: 420 MG, BID
     Route: 065

REACTIONS (30)
  - Amenorrhoea [Recovered/Resolved]
  - Anal incontinence [Unknown]
  - Hypoparathyroidism [Unknown]
  - Vision blurred [Unknown]
  - Depressed mood [Recovering/Resolving]
  - Aggression [Unknown]
  - Dysuria [Unknown]
  - Neurological symptom [Unknown]
  - Product use issue [Unknown]
  - Anxiety [Recovering/Resolving]
  - Diverticulitis [Unknown]
  - Gastrooesophageal reflux disease [Unknown]
  - Agitation [Recovering/Resolving]
  - Generalised oedema [Not Recovered/Not Resolved]
  - Hypersomnia [Unknown]
  - Insomnia [Recovering/Resolving]
  - Musculoskeletal stiffness [Unknown]
  - Drug hypersensitivity [Not Recovered/Not Resolved]
  - Hyperprolactinaemia [Unknown]
  - Hypothyroidism [Unknown]
  - Drug intolerance [Unknown]
  - Off label use [Unknown]
  - Bruxism [Unknown]
  - Musculoskeletal pain [Unknown]
  - Slow speech [Unknown]
  - Breast enlargement [Unknown]
  - Gastrointestinal hypomotility [Unknown]
  - Tremor [Unknown]
  - Weight increased [Unknown]
  - Drug interaction [Unknown]

NARRATIVE: CASE EVENT DATE: 201709
